FAERS Safety Report 7512590-0 (Version None)
Quarter: 2011Q2

REPORT INFORMATION
  Report Type: 
  Country: None (occurrence: None)
  Receive Date: 20110520
  Receipt Date: 20110513
  Transmission Date: 20111010
  Serious: Yes (Death)
  Sender: FDA-Public Use
  Company Number: US-JNJFOC-20110506849

PATIENT
  Sex: Female

DRUGS (1)
  1. DACOGEN [Suspect]
     Indication: LEUKAEMIA
     Dosage: TOTAL OF 3 MONTHS INTRAVENOUS
     Route: 042
     Dates: start: 20110101, end: 20110101

REACTIONS (3)
  - LEUKAEMIA [None]
  - CEREBRAL HAEMORRHAGE [None]
  - NEOPLASM PROGRESSION [None]
